FAERS Safety Report 11602995 (Version 2)
Quarter: 2016Q2

REPORT INFORMATION
  Report Type: Spontaneous
  Country: US (occurrence: US)
  Receive Date: 20151006
  Receipt Date: 20160418
  Transmission Date: 20160815
  Serious: Yes (Other)
  Sender: FDA-Public Use
  Company Number: US-AMGEN-USASP2015094589

PATIENT
  Age: 66 Year
  Sex: Female

DRUGS (1)
  1. PROLIA [Suspect]
     Active Substance: DENOSUMAB
     Indication: OSTEOPOROSIS
     Dosage: UNK
     Route: 065
     Dates: start: 2013

REACTIONS (7)
  - Impaired healing [Unknown]
  - Gingival injury [Unknown]
  - Oral pain [Unknown]
  - Hypersensitivity [Unknown]
  - Exposed bone in jaw [Unknown]
  - Tooth disorder [Unknown]
  - Dental operation [Unknown]
